FAERS Safety Report 7159368-8 (Version None)
Quarter: 2010Q4

REPORT INFORMATION
  Report Type: 
  Country: None (occurrence: None)
  Receive Date: 20101214
  Receipt Date: 20100824
  Transmission Date: 20110411
  Serious: No
  Sender: FDA-Public Use
  Company Number: US-ASTRAZENECA-2010SE39908

PATIENT
  Sex: Female

DRUGS (1)
  1. CRESTOR [Suspect]
     Indication: HYPERCHOLESTEROLAEMIA
     Dosage: DAILY
     Route: 048
     Dates: start: 20070101

REACTIONS (4)
  - ANGIOEDEMA [None]
  - BLISTER [None]
  - LIP SWELLING [None]
  - SWOLLEN TONGUE [None]
